FAERS Safety Report 7187620-9 (Version None)
Quarter: 2010Q4

REPORT INFORMATION
  Report Type: 
  Country: None (occurrence: None)
  Receive Date: 20101222
  Receipt Date: 20100701
  Transmission Date: 20110411
  Serious: Yes (Other)
  Sender: FDA-Public Use
  Company Number: US-AMGEN-KDL420939

PATIENT

DRUGS (4)
  1. ENBREL [Suspect]
     Indication: PRODUCT USED FOR UNKNOWN INDICATION
     Dosage: 50 MG, 2 TIMES/WK
     Route: 058
  2. PREGABALIN [Concomitant]
     Dosage: 150 MG, UNK
  3. MELOXICAM [Concomitant]
     Dosage: 15 MG, UNK
  4. TYLENOL PM [Concomitant]
     Dosage: UNK UNK, UNK

REACTIONS (4)
  - CONTUSION [None]
  - OROPHARYNGEAL PAIN [None]
  - PYREXIA [None]
  - SQUAMOUS CELL CARCINOMA [None]
